FAERS Safety Report 8102879-9 (Version None)
Quarter: 2012Q1

REPORT INFORMATION
  Report Type: 
  Country: None (occurrence: None)
  Receive Date: 20120201
  Receipt Date: 20120123
  Transmission Date: 20120608
  Serious: Yes (Other)
  Sender: FDA-Public Use
  Company Number: GB-SANOFI-AVENTIS-2012SA004789

PATIENT
  Sex: Male

DRUGS (6)
  1. LORATADINE [Concomitant]
     Dosage: DOSE: 10 UNITS NOT PROVIDED
  2. PAROXETINE HYDROCHLORIDE [Suspect]
     Indication: DEPRESSION
     Dosage: STARTED APPROXIMATELY 10-12 YEARS AGO, DOSE: 30 UNITS NOT PROVIDED
     Route: 065
  3. AMLODIPINE [Concomitant]
     Dosage: DOSE: 10 UNITS NOT PROVIDED
  4. ZOLPIDEM [Suspect]
     Indication: INSOMNIA
     Dosage: AT NIGHT, DOSE: 10 UNITS NOT PROVIDED
     Route: 065
  5. SIMVASTATIN [Concomitant]
     Dosage: AT NIGHT, DOSE: 40 UNITS NOT PROVIDED
  6. BENDROFLUMETHIAZIDE [Concomitant]
     Dosage: DOSE: 2.5 UNITS NOT PROVIDED

REACTIONS (4)
  - MEMORY IMPAIRMENT [None]
  - CONFUSIONAL STATE [None]
  - LOSS OF LIBIDO [None]
  - INSOMNIA [None]
